FAERS Safety Report 8336221-5 (Version None)
Quarter: 2012Q2

REPORT INFORMATION
  Report Type: 
  Country: None (occurrence: None)
  Receive Date: 20120501
  Receipt Date: 20120423
  Transmission Date: 20120825
  Serious: Yes (Other)
  Sender: FDA-Public Use
  Company Number: TPA2012A02348

PATIENT

DRUGS (1)
  1. ACTOS [Suspect]

REACTIONS (1)
  - URETERIC CANCER [None]
